FAERS Safety Report 19445611 (Version 1)
Quarter: 2021Q2

REPORT INFORMATION
  Report Type: Report from Study
  Country: None (occurrence: IL)
  Receive Date: 20210622
  Receipt Date: 20210622
  Transmission Date: 20210717
  Serious: Yes (Death, Other)
  Sender: FDA-Public Use
  Company Number: IL-ABBVIE-20K-082-3630641-00

PATIENT
  Age: 85 Year
  Sex: Female
  Weight: 55 kg

DRUGS (13)
  1. STATOR [Concomitant]
     Indication: HYPERLIPIDAEMIA
     Dates: start: 20200730
  2. AZACITIDINE. [Suspect]
     Active Substance: AZACITIDINE
     Route: 058
     Dates: start: 20200921, end: 20201024
  3. CIPROFLOXACIN. [Concomitant]
     Active Substance: CIPROFLOXACIN
     Indication: PROPHYLAXIS
     Dates: start: 20200823
  4. EUTHYROX [Concomitant]
     Active Substance: LEVOTHYROXINE SODIUM
     Indication: HYPOTHYROIDISM
     Dates: start: 20190730
  5. EUTHYROX [Concomitant]
     Active Substance: LEVOTHYROXINE SODIUM
     Dates: start: 20190730
  6. AZACITIDINE. [Suspect]
     Active Substance: AZACITIDINE
     Indication: ACUTE MYELOID LEUKAEMIA
     Route: 058
     Dates: start: 20200823, end: 20200831
  7. AZACITIDINE. [Suspect]
     Active Substance: AZACITIDINE
     Route: 058
     Dates: start: 20200929, end: 20201001
  8. VENETOCLAX. [Suspect]
     Active Substance: VENETOCLAX
     Dosage: RAMP UP
     Route: 048
     Dates: start: 20200824, end: 20200824
  9. VENETOCLAX. [Suspect]
     Active Substance: VENETOCLAX
     Dosage: MODIFICATION TO THE DAILY DOSE
     Route: 048
     Dates: start: 20200921, end: 20201011
  10. OMEPRADEX [Concomitant]
     Active Substance: OMEPRAZOLE
     Indication: GASTROINTESTINAL DISORDER PROPHYLAXIS
     Dates: start: 20190730
  11. VENETOCLAX. [Suspect]
     Active Substance: VENETOCLAX
     Indication: ACUTE MYELOID LEUKAEMIA
     Dosage: RAMP UP
     Route: 048
     Dates: start: 20200823, end: 20200823
  12. VENETOCLAX. [Suspect]
     Active Substance: VENETOCLAX
     Dosage: RAMP UP
     Route: 048
     Dates: start: 20200825, end: 20200919
  13. FLUCONAZOLE. [Concomitant]
     Active Substance: FLUCONAZOLE
     Indication: PROPHYLAXIS
     Dates: start: 20200823

REACTIONS (10)
  - Nausea [Recovered/Resolved]
  - Disease progression [Fatal]
  - Platelet count decreased [Recovered/Resolved]
  - Chills [Unknown]
  - Vomiting [Recovered/Resolved]
  - Dental discomfort [Not Recovered/Not Resolved]
  - Asthenia [Recovered/Resolved]
  - Anaemia [Recovered/Resolved]
  - Neutrophil count decreased [Recovered/Resolved]
  - Constipation [Recovered/Resolved]

NARRATIVE: CASE EVENT DATE: 20200830
